FAERS Safety Report 25133978 (Version 1)
Quarter: 2025Q1

REPORT INFORMATION
  Report Type: Spontaneous
  Country: ES (occurrence: ES)
  Receive Date: 20250328
  Receipt Date: 20250328
  Transmission Date: 20250408
  Serious: Yes (Death, Hospitalization)
  Sender: MACLEODS
  Company Number: ES-MLMSERVICE-20250317-PI435088-00202-7

PATIENT

DRUGS (14)
  1. LINEZOLID [Suspect]
     Active Substance: LINEZOLID
     Indication: Pulmonary nocardiosis
     Route: 065
  2. LINEZOLID [Suspect]
     Active Substance: LINEZOLID
     Indication: Prostate infection
  3. LINEZOLID [Suspect]
     Active Substance: LINEZOLID
     Indication: Bacteraemia
  4. LINEZOLID [Suspect]
     Active Substance: LINEZOLID
     Indication: Large intestine infection
  5. COTRIMOXAZOLE [Suspect]
     Active Substance: SULFAMETHOXAZOLE\TRIMETHOPRIM
     Indication: Pulmonary nocardiosis
     Route: 065
  6. COTRIMOXAZOLE [Suspect]
     Active Substance: SULFAMETHOXAZOLE\TRIMETHOPRIM
     Indication: Nocardiosis
  7. COTRIMOXAZOLE [Suspect]
     Active Substance: SULFAMETHOXAZOLE\TRIMETHOPRIM
     Indication: Nocardiosis
  8. MYCOPHENOLIC ACID [Concomitant]
     Active Substance: MYCOPHENOLIC ACID
     Indication: Systemic lupus erythematosus
     Route: 065
  9. RITUXIMAB [Concomitant]
     Active Substance: RITUXIMAB
     Indication: Systemic lupus erythematosus
     Route: 065
  10. METHYLPREDNISOLONE [Concomitant]
     Active Substance: METHYLPREDNISOLONE
     Indication: Product used for unknown indication
     Route: 065
  11. IMIPENEM [Concomitant]
     Active Substance: IMIPENEM
     Route: 065
  12. IMIPENEM [Concomitant]
     Active Substance: IMIPENEM
     Indication: Prostate infection
  13. IMIPENEM [Concomitant]
     Active Substance: IMIPENEM
     Indication: Bacteraemia
  14. IMIPENEM [Concomitant]
     Active Substance: IMIPENEM
     Indication: Large intestine infection

REACTIONS (4)
  - Fall [Fatal]
  - Injury [Fatal]
  - Aspiration [Fatal]
  - Thrombocytopenia [Unknown]
